FAERS Safety Report 10260143 (Version 1)
Quarter: 2014Q2

REPORT INFORMATION
  Report Type: Report from Study
  Country: JP (occurrence: JP)
  Receive Date: 20140625
  Receipt Date: 20140625
  Transmission Date: 20141212
  Serious: Yes (Other)
  Sender: FDA-Public Use
  Company Number: JP-009507513-1406JPN008479

PATIENT
  Age: 48 Year
  Sex: Male
  Weight: 75 kg

DRUGS (6)
  1. PEGINTRON [Suspect]
     Indication: CHRONIC HEPATITIS C
     Dosage: 1.5 MICROGRAM PER KILOGRAM, QW
     Route: 058
     Dates: start: 20140212, end: 20140409
  2. PEGASYS [Suspect]
     Indication: CHRONIC HEPATITIS C
     Dosage: 180 MICROGRAM, QW
     Route: 058
     Dates: start: 20140416
  3. SIMEPREVIR [Suspect]
     Indication: CHRONIC HEPATITIS C
     Dosage: 100 MG, QD
     Route: 048
     Dates: start: 20140212, end: 20140506
  4. LOXOPROFEN SODIUM [Concomitant]
     Dosage: 60 MG, PRN
     Route: 048
     Dates: start: 20140214
  5. REBAMIPIDE [Concomitant]
     Dosage: 100 MG, PRN
     Route: 048
     Dates: start: 20140214
  6. RIBAVIRIN [Concomitant]
     Indication: CHRONIC HEPATITIS C
     Dosage: 800 MG, QD
     Route: 048
     Dates: start: 20140212

REACTIONS (4)
  - Pyrexia [Recovering/Resolving]
  - Myalgia [Unknown]
  - Drug effect incomplete [Unknown]
  - Jaundice [Unknown]
